FAERS Safety Report 12541160 (Version 9)
Quarter: 2016Q3

REPORT INFORMATION
  Report Type: Report from Study
  Country: BE (occurrence: BE)
  Receive Date: 20160708
  Receipt Date: 20160929
  Transmission Date: 20161109
  Serious: Yes (Hospitalization)
  Sender: FDA-Public Use
  Company Number: BE-EISAI MEDICAL RESEARCH-EC-2016-018320

PATIENT
  Age: 53 Year
  Sex: Female
  Weight: 60 kg

DRUGS (8)
  1. DIPHANTOINE [Suspect]
     Active Substance: PHENYTOIN
     Route: 048
     Dates: start: 201507, end: 20160804
  2. DIPHANTOINE [Suspect]
     Active Substance: PHENYTOIN
     Dosage: 8H: 100 MG ?21H: 150 MG
     Route: 048
     Dates: start: 20160808
  3. TEGRETOL [Suspect]
     Active Substance: CARBAMAZEPINE
     Route: 048
     Dates: start: 201510
  4. DIPHANTOINE [Suspect]
     Active Substance: PHENYTOIN
     Indication: EPILEPSY
     Route: 048
     Dates: start: 201401, end: 201404
  5. DEPAKINE CHRONO [Concomitant]
     Active Substance: VALPROATE SODIUM
  6. TEGRETOL [Suspect]
     Active Substance: CARBAMAZEPINE
     Indication: EPILEPSY
     Route: 048
     Dates: start: 201507, end: 201510
  7. DIPHANTOINE [Suspect]
     Active Substance: PHENYTOIN
     Route: 048
     Dates: start: 201404, end: 201507
  8. FYCOMPA [Suspect]
     Active Substance: PERAMPANEL
     Indication: EPILEPSY
     Route: 048
     Dates: start: 20160603

REACTIONS (2)
  - Toxicity to various agents [Recovered/Resolved]
  - Hyponatraemia [Recovered/Resolved]

NARRATIVE: CASE EVENT DATE: 20160624
